FAERS Safety Report 25976152 (Version 1)
Quarter: 2025Q4

REPORT INFORMATION
  Report Type: Report from Study
  Country: US (occurrence: US)
  Receive Date: 20251029
  Receipt Date: 20251029
  Transmission Date: 20260118
  Serious: No
  Sender: MALLINCKRODT
  Company Number: US-MALLINCKRODT-MNK202506482

PATIENT
  Sex: Female

DRUGS (1)
  1. CORTICOTROPIN [Suspect]
     Active Substance: CORTICOTROPIN
     Indication: Granuloma
     Dosage: UNKNOWN

REACTIONS (4)
  - Eye swelling [Not Recovered/Not Resolved]
  - Food intolerance [Recovering/Resolving]
  - Blood immunoglobulin G increased [Unknown]
  - Fluid retention [Recovered/Resolved]
